FAERS Safety Report 6754732-0 (Version None)
Quarter: 2010Q2

REPORT INFORMATION
  Report Type: 
  Country: None (occurrence: None)
  Receive Date: 20100603
  Receipt Date: 20100525
  Transmission Date: 20101027
  Serious: Yes (Other)
  Sender: FDA-Public Use
  Company Number: CA-ABBOTT-10P-028-0646777-00

PATIENT
  Sex: Female

DRUGS (13)
  1. HUMIRA [Suspect]
     Indication: PSORIATIC ARTHROPATHY
     Route: 058
     Dates: start: 20081003, end: 20100513
  2. METHOTREXATE [Concomitant]
     Indication: PSORIATIC ARTHROPATHY
     Route: 058
  3. ACTOS [Concomitant]
     Indication: DIABETES MELLITUS
     Route: 048
  4. METFORMIN [Concomitant]
     Indication: DIABETES MELLITUS
     Route: 048
  5. INDAPAMIDE [Concomitant]
     Indication: HYPERTENSION
     Route: 048
  6. PARIENT [Concomitant]
     Indication: DRUG USE FOR UNKNOWN INDICATION
     Route: 048
  7. CRESTOR [Concomitant]
     Indication: HYPERCHOLESTEROLAEMIA
     Route: 048
  8. FOLIC ACID [Concomitant]
     Indication: DRUG USE FOR UNKNOWN INDICATION
     Route: 048
  9. VIT D [Concomitant]
     Indication: VITAMIN SUPPLEMENTATION
     Route: 048
  10. ALDACTONE [Concomitant]
     Indication: DRUG USE FOR UNKNOWN INDICATION
     Dosage: 2 TABS QD
  11. ATASOL [Concomitant]
     Indication: PAIN
  12. ADVAIR DISKUS 100/50 [Concomitant]
     Indication: ASTHMA
     Dosage: QD
  13. VENTOLIN [Concomitant]
     Indication: ASTHMA
     Dosage: BID

REACTIONS (1)
  - BREAST MASS [None]
